FAERS Safety Report 17094256 (Version 1)
Quarter: 2019Q4

REPORT INFORMATION
  Report Type: Spontaneous
  Country: US (occurrence: US)
  Receive Date: 20191129
  Receipt Date: 20191129
  Transmission Date: 20200122
  Serious: Yes (Hospitalization)
  Sender: FDA-Public Use
  Company Number: US-NOVOPROD-698763

PATIENT
  Age: 69 Year
  Sex: Female

DRUGS (1)
  1. NOVOLOG [Suspect]
     Active Substance: INSULIN ASPART
     Indication: TYPE 2 DIABETES MELLITUS
     Dosage: 10 IU, TID (BEFORE MEAL)
     Route: 058
     Dates: start: 2014

REACTIONS (1)
  - Knee arthroplasty [Recovered/Resolved]

NARRATIVE: CASE EVENT DATE: 20191016
